FAERS Safety Report 25388147 (Version 1)
Quarter: 2025Q2

REPORT INFORMATION
  Report Type: Spontaneous
  Country: US (occurrence: US)
  Receive Date: 20250603
  Receipt Date: 20250603
  Transmission Date: 20250716
  Serious: No
  Sender: CIPLA
  Company Number: US-CIPLA LTD.-2025US06379

PATIENT

DRUGS (2)
  1. DICLOFENAC [Suspect]
     Active Substance: DICLOFENAC
     Indication: Arthritis
     Route: 061
  2. DICLOFENAC [Suspect]
     Active Substance: DICLOFENAC
     Route: 061

REACTIONS (1)
  - Product administered at inappropriate site [Unknown]
